FAERS Safety Report 4512944-0 (Version None)
Quarter: 2004Q4

REPORT INFORMATION
  Report Type: 
  Country: None (occurrence: None)
  Receive Date: 20041124
  Receipt Date: 20041117
  Transmission Date: 20050328
  Serious: Yes (Other)
  Sender: FDA-Public Use
  Company Number: K200401766

PATIENT
  Age: 58 Year
  Sex: Female
  Weight: 83 kg

DRUGS (5)
  1. LEVOXYL [Suspect]
     Indication: HYPOTHYROIDISM
     Dosage: 88 MCG, QD, ORAL
     Route: 048
     Dates: start: 20030101, end: 20040101
  2. LEVOXYL [Suspect]
     Indication: HYPOTHYROIDISM
     Dosage: 88 MCG, QD, ORAL
     Route: 048
     Dates: start: 20040101, end: 20041113
  3. LEVOXYL [Suspect]
     Indication: HYPOTHYROIDISM
     Dosage: 88 MCG, QD, ORAL
     Route: 048
     Dates: start: 20041115
  4. PRILOSEC [Concomitant]
  5. ATACAND [Concomitant]

REACTIONS (4)
  - BLOOD PRESSURE INCREASED [None]
  - PAIN IN EXTREMITY [None]
  - PHARMACEUTICAL PRODUCT COMPLAINT [None]
  - SENSATION OF FOREIGN BODY [None]
